FAERS Safety Report 4649514-X (Version None)
Quarter: 2005Q2

REPORT INFORMATION
  Report Type: 
  Country: None (occurrence: None)
  Receive Date: 20050428
  Receipt Date: 20050428
  Transmission Date: 20051028
  Serious: Yes (Other)
  Sender: FDA-Public Use
  Company Number: None

PATIENT
  Age: 70 Year
  Sex: Female

DRUGS (1)
  1. METFORMIN 500MG [Suspect]
     Indication: DIABETES MELLITUS NON-INSULIN-DEPENDENT
     Dosage: 1 TABLET BY MOUTH IN MORNING AND 2 IN EVENING WITH MEALS  ABOUT 3 YEARS OR MORE
     Route: 048

REACTIONS (1)
  - BLOOD GLUCOSE INCREASED [None]
